FAERS Safety Report 7201944-8 (Version None)
Quarter: 2010Q4

REPORT INFORMATION
  Report Type: 
  Country: None (occurrence: None)
  Receive Date: 20101229
  Receipt Date: 20101220
  Transmission Date: 20110411
  Serious: Yes (Hospitalization, Other)
  Sender: FDA-Public Use
  Company Number: US-JNJFOC-20100904206

PATIENT
  Sex: Female
  Weight: 87.09 kg

DRUGS (14)
  1. LEVAQUIN [Suspect]
     Indication: UPPER RESPIRATORY TRACT INFECTION
     Route: 048
  2. LEVAQUIN [Suspect]
     Route: 048
  3. LEVAQUIN [Suspect]
     Indication: DIVERTICULITIS
     Route: 048
  4. LEVAQUIN [Suspect]
     Route: 048
  5. LEVAQUIN [Suspect]
     Indication: PNEUMONIA
     Route: 048
  6. LEVAQUIN [Suspect]
     Route: 048
  7. LEVAQUIN [Suspect]
     Indication: BACTERIAL INFECTION
     Route: 048
  8. LEVAQUIN [Suspect]
     Route: 048
  9. CIPROFLOXACIN [Suspect]
     Indication: ILL-DEFINED DISORDER
     Route: 065
  10. PREDNISONE [Suspect]
     Indication: STEROID THERAPY
     Route: 048
  11. METHYLPREDNISOLONE ACETATE [Suspect]
     Indication: STEROID THERAPY
     Route: 065
  12. GLUCOVANCE [Concomitant]
     Indication: DIABETES MELLITUS
     Route: 065
  13. DIOVAN [Concomitant]
     Indication: DIABETES MELLITUS
     Route: 065
  14. MELOXICAM [Concomitant]
     Indication: PAIN
     Route: 065

REACTIONS (7)
  - ARTHRALGIA [None]
  - BURSITIS [None]
  - DRUG TOXICITY [None]
  - MUSCLE INJURY [None]
  - MUSCULOSKELETAL PAIN [None]
  - ROTATOR CUFF SYNDROME [None]
  - TENDON DISORDER [None]
